FAERS Safety Report 12547561 (Version 3)
Quarter: 2016Q3

REPORT INFORMATION
  Report Type: Report from Study
  Country: GB (occurrence: GB)
  Receive Date: 20160712
  Receipt Date: 20160722
  Transmission Date: 20161109
  Serious: Yes (Hospitalization, Other)
  Sender: FDA-Public Use
  Company Number: GB-ROCHE-1788958

PATIENT
  Age: 70 Year
  Sex: Female
  Weight: 84.1 kg

DRUGS (20)
  1. PARACETAMOL [Concomitant]
     Active Substance: ACETAMINOPHEN
     Route: 048
  2. FEBUXOSTAT. [Concomitant]
     Active Substance: FEBUXOSTAT
     Indication: GOUT
     Route: 048
  3. LANSOPRAZOLE. [Concomitant]
     Active Substance: LANSOPRAZOLE
     Route: 048
     Dates: start: 20160629
  4. RAMIPRIL. [Concomitant]
     Active Substance: RAMIPRIL
     Indication: HYPERTENSION
     Route: 048
  5. BISOPROLOL [Concomitant]
     Active Substance: BISOPROLOL
     Dosage: FOR CARDIAC
     Route: 048
  6. POSACONAZOLE [Concomitant]
     Active Substance: POSACONAZOLE
     Route: 065
     Dates: end: 20160624
  7. BUMETANIDE. [Concomitant]
     Active Substance: BUMETANIDE
     Dosage: FOR DIURETIC
     Route: 048
  8. EPLERENONE. [Concomitant]
     Active Substance: EPLERENONE
     Dosage: AS DIURETIC
     Route: 048
  9. HEPARIN [Concomitant]
     Active Substance: HEPARIN SODIUM
     Dosage: 51000.0 UNITS; AS ANTI-COAGULANT
     Route: 058
     Dates: start: 20160629
  10. RITUXIMAB [Suspect]
     Active Substance: RITUXIMAB
     Indication: B-CELL LYMPHOMA
     Route: 042
     Dates: start: 20150819
  11. CHLORPHENIRAMINE. [Concomitant]
     Active Substance: CHLORPHENIRAMINE
  12. CITALOPRAM [Concomitant]
     Active Substance: CITALOPRAM HYDROBROMIDE
     Route: 048
  13. FULTIUM-D3 [Concomitant]
     Dosage: 800 UNIT
     Route: 048
  14. ZOPICLONE [Concomitant]
     Active Substance: ZOPICLONE
     Indication: INSOMNIA
     Route: 048
  15. SERETIDE [Concomitant]
     Active Substance: FLUTICASONE PROPIONATE\SALMETEROL XINAFOATE
     Dosage: 500.01 PUFF
     Route: 050
  16. SALBUTAMOL [Concomitant]
     Active Substance: ALBUTEROL
     Route: 065
  17. SALINE [Concomitant]
     Active Substance: SODIUM CHLORIDE
     Route: 042
  18. CODEINE [Concomitant]
     Active Substance: CODEINE
     Route: 048
  19. TIOTROPIUM [Concomitant]
     Active Substance: TIOTROPIUM
     Dosage: 2 PUFFS; FOR RESPIRATORY
     Route: 050
  20. CYCLIZINE [Concomitant]
     Active Substance: CYCLIZINE
     Indication: NAUSEA
     Route: 048
     Dates: start: 20160628

REACTIONS (6)
  - Enterocolitis infectious [Recovered/Resolved]
  - Diarrhoea [Recovered/Resolved]
  - Lethargy [Not Recovered/Not Resolved]
  - Acute kidney injury [Not Recovered/Not Resolved]
  - Gastroenteritis [Recovered/Resolved]
  - Vomiting [Not Recovered/Not Resolved]

NARRATIVE: CASE EVENT DATE: 20160628
